FAERS Safety Report 16650549 (Version 2)
Quarter: 2019Q3

REPORT INFORMATION
  Report Type: Report from Study
  Country: None (occurrence: CL)
  Receive Date: 20190731
  Receipt Date: 20190821
  Transmission Date: 20191004
  Serious: Yes (Other)
  Sender: FDA-Public Use
  Company Number: CL-ABBVIE-19K-034-2871579-00

PATIENT
  Age: 56 Year
  Sex: Male

DRUGS (1)
  1. HUMIRA [Suspect]
     Active Substance: ADALIMUMAB
     Indication: SPONDYLITIS
     Route: 058
     Dates: start: 20130101, end: 20190715

REACTIONS (4)
  - Joint warmth [Unknown]
  - Arthritis [Unknown]
  - Arthralgia [Unknown]
  - Meniscus injury [Recovering/Resolving]

NARRATIVE: CASE EVENT DATE: 201907
